FAERS Safety Report 8022576-8 (Version None)
Quarter: 2012Q1

REPORT INFORMATION
  Report Type: 
  Country: None (occurrence: None)
  Receive Date: 20120104
  Receipt Date: 20120103
  Transmission Date: 20120608
  Serious: Yes (Hospitalization)
  Sender: FDA-Public Use
  Company Number: US-GLAXOSMITHKLINE-A0938905A

PATIENT
  Age: 71 Year
  Sex: Female
  Weight: 87.3 kg

DRUGS (2)
  1. AVANDIA [Suspect]
     Indication: DIABETES MELLITUS
     Dosage: 8MG PER DAY
     Route: 048
     Dates: start: 20051001, end: 20070101
  2. NORVASC [Concomitant]

REACTIONS (1)
  - ACUTE MYOCARDIAL INFARCTION [None]
